FAERS Safety Report 9973888 (Version 2)
Quarter: 2014Q2

REPORT INFORMATION
  Report Type: Spontaneous
  Country: GB (occurrence: GB)
  Receive Date: 20140306
  Receipt Date: 20140425
  Transmission Date: 20141212
  Serious: Yes (Other)
  Sender: FDA-Public Use
  Company Number: GB-TEVA-466853ISR

PATIENT
  Sex: Male

DRUGS (3)
  1. PROVIGIL [Suspect]
     Indication: INSOMNIA
     Dosage: 100 MILLIGRAM DAILY;
     Route: 065
  2. COSOPT [Concomitant]
     Route: 065
  3. LUMIGAN [Concomitant]
     Route: 065

REACTIONS (3)
  - Optic nerve cupping [Unknown]
  - Intraocular pressure increased [Recovered/Resolved]
  - Dry mouth [Unknown]
